FAERS Safety Report 8779017 (Version 1)
Quarter: 2012Q4

REPORT INFORMATION
  Report Type: 
  Country: JP (occurrence: JP)
  Receive Date: 20120910
  Receipt Date: 20120910
  Transmission Date: 20130627
  Serious: Yes (Hospitalization)
  Sender: FDA-Public Use
  Company Number: JP-ELI_LILLY_AND_COMPANY-JP201204005253

PATIENT
  Age: 74 Year
  Sex: Female

DRUGS (2)
  1. FORTEO [Suspect]
     Dosage: UNK
     Route: 058
     Dates: start: 20120413, end: 20120802
  2. FORTEO [Suspect]
     Dosage: UNK
     Route: 058
     Dates: start: 20120830

REACTIONS (3)
  - Enterocolitis bacterial [Unknown]
  - Malaise [Unknown]
  - Injection site bruising [Recovering/Resolving]
